FAERS Safety Report 6917124-7 (Version None)
Quarter: 2010Q3

REPORT INFORMATION
  Report Type: 
  Country: None (occurrence: None)
  Receive Date: 20100810
  Receipt Date: 20100726
  Transmission Date: 20110219
  Serious: Yes (Hospitalization)
  Sender: FDA-Public Use
  Company Number: B0669126A

PATIENT
  Age: 66 Year
  Sex: Male
  Weight: 54 kg

DRUGS (14)
  1. CIMETIDINE [Suspect]
  2. URSODIOL [Suspect]
     Indication: HEPATIC CIRRHOSIS
     Route: 048
  3. LORMETAZEPAM [Suspect]
  4. ESTAZOLAM [Suspect]
  5. HALOPERIDOL [Suspect]
  6. LIMAPROST [Suspect]
  7. FUROSEMIDE [Suspect]
  8. SPIRONOLACTONE [Suspect]
  9. LOXOPROFEN [Suspect]
  10. DICLOFENAC [Suspect]
  11. VANCOMYCIN [Suspect]
  12. IMIPENEM [Suspect]
  13. GLYCEROL [Suspect]
  14. LINEZOLID [Suspect]
     Dosage: 600MG PER DAY

REACTIONS (17)
  - ASCITES [None]
  - BLOOD CULTURE POSITIVE [None]
  - CANDIDA TEST POSITIVE [None]
  - DYSPNOEA [None]
  - ERYTHEMA MULTIFORME [None]
  - HAEMORRHAGE [None]
  - HYPOXIA [None]
  - INCREASED BRONCHIAL SECRETION [None]
  - MUCOSAL EROSION [None]
  - NIKOLSKY'S SIGN [None]
  - PANCYTOPENIA [None]
  - PNEUMONIA [None]
  - PYREXIA [None]
  - SEPSIS [None]
  - SKIN EROSION [None]
  - TACHYPNOEA [None]
  - TOXIC EPIDERMAL NECROLYSIS [None]
